FAERS Safety Report 7521142-8 (Version None)
Quarter: 2011Q2

REPORT INFORMATION
  Report Type: 
  Country: None (occurrence: None)
  Receive Date: 20110603
  Receipt Date: 20101206
  Transmission Date: 20111010
  Serious: Yes (Hospitalization, Other)
  Sender: FDA-Public Use
  Company Number: US-BAYER-201034973NA

PATIENT
  Age: 55 Year
  Sex: Male
  Weight: 97.052 kg

DRUGS (14)
  1. BENAZEPRIL HYDROCHLORIDE [Concomitant]
  2. PROAIR HFA [Concomitant]
  3. SINGULAIR [Concomitant]
     Indication: RESPIRATORY TRACT CONGESTION
  4. AVELOX [Suspect]
     Indication: SINUS CONGESTION
  5. NEXIUM [Concomitant]
  6. ZYRTEC [Concomitant]
  7. BIAXIN [Concomitant]
     Dosage: 500 MG, BID
  8. ALBUTEROL SULFATE AUTOHALER [Concomitant]
  9. GUAIFENESIN [Concomitant]
     Indication: COUGH
  10. AVELOX [Suspect]
     Indication: RESPIRATORY TRACT CONGESTION
  11. THYROID TAB [Concomitant]
  12. ADVAIR DISKUS 100/50 [Concomitant]
  13. NASONEX [Concomitant]
  14. DEPO-MEDROL [Concomitant]
     Dosage: 60 MG, UNK

REACTIONS (8)
  - BLOOD ALKALINE PHOSPHATASE INCREASED [None]
  - PAIN [None]
  - HEPATIC ENZYME INCREASED [None]
  - BLOOD BILIRUBIN INCREASED [None]
  - FAECES DISCOLOURED [None]
  - PRURITUS [None]
  - FATIGUE [None]
  - CHROMATURIA [None]
